FAERS Safety Report 20908512 (Version 1)
Quarter: 2022Q2

REPORT INFORMATION
  Report Type: Spontaneous
  Country: FR (occurrence: FR)
  Receive Date: 20220603
  Receipt Date: 20220603
  Transmission Date: 20220721
  Serious: Yes (Hospitalization)
  Sender: FDA-Public Use
  Company Number: FR-AFSSAPS-DJ20221185

PATIENT
  Age: 41 Year
  Sex: Male
  Weight: 100 kg

DRUGS (4)
  1. OXALIPLATIN [Suspect]
     Active Substance: OXALIPLATIN
     Indication: Chest wall tumour
     Dosage: 170 MILLIGRAM, IN TOTAL
     Route: 042
     Dates: start: 20220426, end: 20220426
  2. METHYLPREDNISOLONE [Concomitant]
     Active Substance: METHYLPREDNISOLONE
     Indication: Prophylaxis of nausea and vomiting
     Dosage: 100 MILLIGRAM
     Route: 042
     Dates: start: 20220426, end: 20220426
  3. ONDANSETRON HYDROCHLORIDE [Concomitant]
     Active Substance: ONDANSETRON HYDROCHLORIDE
     Indication: Prophylaxis of nausea and vomiting
     Dosage: 8 MILLIGRAM
     Route: 042
     Dates: start: 20220426, end: 20220426
  4. GEMCITABINE ACCORD 1000 mg powder for solution for infusion [Concomitant]
     Indication: Chest wall tumour
     Dosage: 2100 MILLIGRAM
     Route: 042
     Dates: start: 20220426, end: 20220426

REACTIONS (1)
  - Infusion related hypersensitivity reaction [Recovered/Resolved]

NARRATIVE: CASE EVENT DATE: 20220426
